FAERS Safety Report 24356519 (Version 4)
Quarter: 2024Q4

REPORT INFORMATION
  Report Type: Spontaneous
  Country: US (occurrence: US)
  Receive Date: 20240924
  Receipt Date: 20241027
  Transmission Date: 20250115
  Serious: No
  Sender: ROCHE
  Company Number: US-ROCHE-10000087940

PATIENT
  Sex: Female
  Weight: 54.43 kg

DRUGS (2)
  1. XOLAIR [Suspect]
     Active Substance: OMALIZUMAB
     Indication: Idiopathic urticaria
     Dosage: STRENGTH:75MG/0.5ML
     Route: 058
     Dates: start: 202406
  2. XOLAIR [Suspect]
     Active Substance: OMALIZUMAB
     Dosage: STRENGTH:75MG/0.5ML
     Route: 058

REACTIONS (5)
  - Needle issue [Unknown]
  - Device defective [Unknown]
  - Accidental underdose [Unknown]
  - Off label use [Unknown]
  - No adverse event [Unknown]
